FAERS Safety Report 19459510 (Version 1)
Quarter: 2021Q2

REPORT INFORMATION
  Report Type: Report from Study
  Country: FR (occurrence: FR)
  Receive Date: 20210624
  Receipt Date: 20210624
  Transmission Date: 20210717
  Serious: Yes (Hospitalization)
  Sender: FDA-Public Use
  Company Number: FR-TAKEDA-2021TUS038557

PATIENT
  Age: 11 Year
  Sex: Male

DRUGS (12)
  1. LIDOCAINE. [Concomitant]
     Active Substance: LIDOCAINE
     Indication: PROCTALGIA
     Dosage: 1 APPLICATION, BID
     Route: 054
     Dates: start: 20210303, end: 20210308
  2. TEDUGLUTIDE [Suspect]
     Active Substance: TEDUGLUTIDE
     Indication: SHORT-BOWEL SYNDROME
     Dosage: 1.8 MILLIGRAM (7 DOSES PER WEEK)
     Route: 065
     Dates: start: 20190611, end: 20190801
  3. TEDUGLUTIDE [Suspect]
     Active Substance: TEDUGLUTIDE
     Dosage: 2 MILLIGRAM (7 DOSES PER WEEK)
     Route: 065
     Dates: start: 20190802
  4. TEDUGLUTIDE [Suspect]
     Active Substance: TEDUGLUTIDE
     Indication: SHORT-BOWEL SYNDROME
     Dosage: 1.8 MILLIGRAM (7 DOSES PER WEEK)
     Route: 065
     Dates: start: 20190611, end: 20190801
  5. TEDUGLUTIDE [Suspect]
     Active Substance: TEDUGLUTIDE
     Dosage: 2 MILLIGRAM (7 DOSES PER WEEK)
     Route: 065
     Dates: start: 20190802
  6. URSOFALK [Concomitant]
     Active Substance: URSODIOL
     Indication: PROPHYLAXIS
     Dosage: 400 MILLIGRAM, BID
     Route: 048
     Dates: start: 20190802
  7. TEDUGLUTIDE [Suspect]
     Active Substance: TEDUGLUTIDE
     Dosage: 2 MILLIGRAM (7 DOSES PER WEEK)
     Route: 065
     Dates: start: 20190802
  8. PARACETAMOL [Concomitant]
     Active Substance: ACETAMINOPHEN
     Indication: PROCEDURAL PAIN
     Dosage: 500 MILLIGRAM
     Route: 048
     Dates: start: 20210303, end: 20210308
  9. TEDUGLUTIDE [Suspect]
     Active Substance: TEDUGLUTIDE
     Indication: SHORT-BOWEL SYNDROME
     Dosage: 1.8 MILLIGRAM (7 DOSES PER WEEK)
     Route: 065
     Dates: start: 20190611, end: 20190801
  10. TEDUGLUTIDE [Suspect]
     Active Substance: TEDUGLUTIDE
     Indication: SHORT-BOWEL SYNDROME
     Dosage: 1.8 MILLIGRAM (7 DOSES PER WEEK)
     Route: 065
     Dates: start: 20190611, end: 20190801
  11. PARACETAMOL [Concomitant]
     Active Substance: ACETAMINOPHEN
     Indication: PROCTALGIA
     Dosage: 500 MILLIGRAM
     Route: 048
     Dates: start: 20210609
  12. TEDUGLUTIDE [Suspect]
     Active Substance: TEDUGLUTIDE
     Dosage: 2 MILLIGRAM (7 DOSES PER WEEK)
     Route: 065
     Dates: start: 20190802

REACTIONS (2)
  - Proctalgia [Recovered/Resolved]
  - Testicular disorder [Recovered/Resolved]

NARRATIVE: CASE EVENT DATE: 20210303
